FAERS Safety Report 12513088 (Version 1)
Quarter: 2016Q2

REPORT INFORMATION
  Report Type: Spontaneous
  Country: None (occurrence: None)
  Receive Date: 20160629
  Receipt Date: 20160629
  Transmission Date: 20160815
  Serious: Yes (Other)
  Sender: FDA-Public Use
  Company Number: None

PATIENT
  Age: 58 Year
  Sex: Male
  Weight: 74.12 kg

DRUGS (1)
  1. LISINOPRIL, 5 MG [Suspect]
     Active Substance: LISINOPRIL
     Route: 048

REACTIONS (1)
  - Swelling face [None]

NARRATIVE: CASE EVENT DATE: 20160611
